FAERS Safety Report 15269556 (Version 2)
Quarter: 2018Q4

REPORT INFORMATION
  Report Type: Spontaneous
  Country: AU (occurrence: AU)
  Receive Date: 20180813
  Receipt Date: 20181128
  Transmission Date: 20190204
  Serious: Yes (Other)
  Sender: FDA-Public Use
  Company Number: AU-ROCHE-2166832

PATIENT
  Sex: Female

DRUGS (5)
  1. LUCENTIS [Suspect]
     Active Substance: RANIBIZUMAB
     Dosage: (IN BOTH EYES)
     Route: 065
     Dates: start: 2018
  2. FISH OIL [Concomitant]
     Active Substance: FISH OIL
     Route: 065
  3. LUCENTIS [Suspect]
     Active Substance: RANIBIZUMAB
     Route: 065
  4. LUCENTIS [Suspect]
     Active Substance: RANIBIZUMAB
     Indication: NEOVASCULAR AGE-RELATED MACULAR DEGENERATION
     Route: 065
  5. MACUVISION PLUS [Concomitant]

REACTIONS (15)
  - Product administration error [Unknown]
  - Product administered at inappropriate site [Unknown]
  - Night blindness [Unknown]
  - Anxiety [Unknown]
  - Drug ineffective [Unknown]
  - Inappropriate schedule of product administration [Unknown]
  - Ocular hyperaemia [Unknown]
  - Frustration tolerance decreased [Unknown]
  - Headache [Unknown]
  - Injection site pain [Unknown]
  - Neovascular age-related macular degeneration [Unknown]
  - Nausea [Unknown]
  - Vision blurred [Unknown]
  - Glaucoma [Unknown]
  - Scratch [Unknown]
